FAERS Safety Report 12828141 (Version 2)
Quarter: 2016Q4

REPORT INFORMATION
  Report Type: Spontaneous
  Country: US (occurrence: US)
  Receive Date: 20161007
  Receipt Date: 20161220
  Transmission Date: 20170207
  Serious: No
  Sender: FDA-Public Use
  Company Number: US-PFIZER INC-2016467364

PATIENT
  Age: 63 Year
  Sex: Male
  Weight: 93 kg

DRUGS (3)
  1. VIAGRA [Suspect]
     Active Substance: SILDENAFIL CITRATE
     Indication: ERECTILE DYSFUNCTION
     Dosage: 15 MG, ALTERNATE DAY (EVERY OTHER DAY)
     Dates: start: 201602
  2. VIAGRA [Suspect]
     Active Substance: SILDENAFIL CITRATE
     Dosage: 15 MG, ALTERNATE DAY (MAYBE 15 MG EVERY OTHER DAY)
     Route: 048
     Dates: start: 201608
  3. YOHIMBE BARK [Concomitant]
     Dosage: 6 MG, DAILY (3MG CAPSULES, TWO CAPSULES BY MOUTH DAILY)
     Route: 048
     Dates: start: 201606, end: 201608

REACTIONS (1)
  - Insomnia [Not Recovered/Not Resolved]

NARRATIVE: CASE EVENT DATE: 201602
